FAERS Safety Report 12587186 (Version 4)
Quarter: 2016Q3

REPORT INFORMATION
  Report Type: Spontaneous
  Country: JP (occurrence: JP)
  Receive Date: 20160725
  Receipt Date: 20160805
  Transmission Date: 20161109
  Serious: Yes (Hospitalization, Other)
  Sender: FDA-Public Use
  Company Number: JP-ELI_LILLY_AND_COMPANY-JP201607009575

PATIENT
  Age: 53 Year
  Sex: Male
  Weight: 55 kg

DRUGS (9)
  1. VANCOMYCIN [Suspect]
     Active Substance: VANCOMYCIN
     Dosage: 800 MG, BID
     Route: 065
  2. TS-1 [Suspect]
     Active Substance: GIMERACIL\OTERACIL\TEGAFUR
     Indication: COLORECTAL CANCER
     Dosage: 60 MG, BID
     Route: 048
     Dates: start: 20160310
  3. ERBITUX [Suspect]
     Active Substance: CETUXIMAB
     Indication: COLORECTAL CANCER
     Dosage: 640 MG, UNKNOWN
     Route: 042
     Dates: start: 20160310, end: 20160310
  4. IRINOTECAN [Suspect]
     Active Substance: IRINOTECAN
     Indication: COLORECTAL CANCER
     Dosage: 240 MG, UNKNOWN
     Route: 065
     Dates: start: 20160310, end: 20160609
  5. ERBITUX [Suspect]
     Active Substance: CETUXIMAB
     Dosage: 400 MG, UNKNOWN
     Route: 042
     Dates: end: 20160609
  6. VANCOMYCIN [Suspect]
     Active Substance: VANCOMYCIN
     Dosage: 1250 MG, BID
     Route: 065
  7. VANCOMYCIN [Suspect]
     Active Substance: VANCOMYCIN
     Indication: STAPHYLOCOCCAL INFECTION
     Dosage: 800 MG, BID
     Route: 065
     Dates: start: 20160704
  8. VANCOMYCIN [Suspect]
     Active Substance: VANCOMYCIN
     Dosage: 1250 MG, BID
     Route: 065
  9. TS-1 [Suspect]
     Active Substance: GIMERACIL\OTERACIL\TEGAFUR
     Dosage: 120 MG, UNK
     Dates: end: 20160617

REACTIONS (11)
  - Diarrhoea [Recovering/Resolving]
  - Paronychia [Unknown]
  - Cardiac failure [Unknown]
  - Dehydration [Unknown]
  - Nail avulsion [Unknown]
  - Eosinophilic pneumonia [Recovering/Resolving]
  - Staphylococcal infection [Unknown]
  - Pyrexia [Recovering/Resolving]
  - Acute respiratory distress syndrome [Recovering/Resolving]
  - Rash [Unknown]
  - Off label use [Unknown]

NARRATIVE: CASE EVENT DATE: 20160616
